FAERS Safety Report 14553561 (Version 1)
Quarter: 2018Q1

REPORT INFORMATION
  Report Type: Spontaneous
  Country: US (occurrence: US)
  Receive Date: 20180214
  Receipt Date: 20180214
  Transmission Date: 20180509
  Serious: Yes (Hospitalization)
  Sender: FDA-Public Use
  Company Number: None

PATIENT
  Age: 68 Year
  Sex: Male
  Weight: 96 kg

DRUGS (3)
  1. ASA [Suspect]
     Active Substance: ASPIRIN
     Indication: POLYP
     Dosage: OTHER FREQUENCY:Q8 WEEKS;?
     Route: 058
  2. ASA [Suspect]
     Active Substance: ASPIRIN
     Indication: ASTHMA
     Dosage: OTHER FREQUENCY:Q8 WEEKS;?
     Route: 058
  3. BENRALIZUMAB OR PLACEBO [Concomitant]
     Active Substance: BENRALIZUMAB

REACTIONS (4)
  - Accidental exposure to product [None]
  - Sinus disorder [None]
  - Pneumonia [None]
  - Asthma [None]

NARRATIVE: CASE EVENT DATE: 20180203
